FAERS Safety Report 15385644 (Version 2)
Quarter: 2018Q3

REPORT INFORMATION
  Report Type: Report from Study
  Country: CA (occurrence: CA)
  Receive Date: 20180914
  Receipt Date: 20180928
  Transmission Date: 20181010
  Serious: Yes (Other)
  Sender: FDA-Public Use
  Company Number: CA-ASTELLAS-2018US040504

PATIENT
  Age: 49 Year
  Sex: Female
  Weight: 40 kg

DRUGS (1)
  1. ISAVUCONAZOLE [Suspect]
     Active Substance: ISAVUCONAZOLE
     Indication: SCOPULARIOPSIS INFECTION
     Route: 065
     Dates: start: 20180607, end: 20180628

REACTIONS (4)
  - Condition aggravated [Unknown]
  - Scopulariopsis infection [Unknown]
  - Off label use [Unknown]
  - Drug ineffective for unapproved indication [Unknown]

NARRATIVE: CASE EVENT DATE: 20180607
